FAERS Safety Report 6019600-0 (Version None)
Quarter: 2008Q4

REPORT INFORMATION
  Report Type: 
  Country: None (occurrence: None)
  Receive Date: 20081224
  Receipt Date: 20081217
  Transmission Date: 20090506
  Serious: Yes (Other)
  Sender: FDA-Public Use
  Company Number: US-GENENTECH-274299

PATIENT
  Age: 58 Year
  Sex: Female
  Weight: 101.59 kg

DRUGS (1)
  1. RAPTIVA [Suspect]
     Indication: PSORIASIS
     Dosage: 100 MG, 1/WEEK
     Route: 058

REACTIONS (2)
  - HAEMOPTYSIS [None]
  - MOUTH HAEMORRHAGE [None]
